FAERS Safety Report 23880442 (Version 1)
Quarter: 2024Q2

REPORT INFORMATION
  Report Type: Spontaneous
  Country: AU (occurrence: AU)
  Receive Date: 20240521
  Receipt Date: 20240521
  Transmission Date: 20240716
  Serious: Yes (Hospitalization)
  Sender: FDA-Public Use
  Company Number: None

PATIENT
  Age: 20 Year
  Sex: Female

DRUGS (1)
  1. DIPROSONE [Suspect]
     Active Substance: BETAMETHASONE DIPROPIONATE
     Dosage: ONCE OR TWICE A MONTH IN VERY SMALL DOSAGE ON HANDS

REACTIONS (9)
  - Urticaria [Not Recovered/Not Resolved]
  - Dermatitis [Unknown]
  - Dry skin [Unknown]
  - Flushing [Not Recovered/Not Resolved]
  - Pain of skin [Unknown]
  - Pyrexia [Not Recovered/Not Resolved]
  - Sensitive skin [Not Recovered/Not Resolved]
  - Skin tightness [Unknown]
  - Temperature regulation disorder [Not Recovered/Not Resolved]

NARRATIVE: CASE EVENT DATE: 20231210
